FAERS Safety Report 14542737 (Version 1)
Quarter: 2018Q1

REPORT INFORMATION
  Report Type: Spontaneous
  Country: US (occurrence: US)
  Receive Date: 20180216
  Receipt Date: 20180216
  Transmission Date: 20180509
  Serious: Yes (Hospitalization)
  Sender: FDA-Public Use
  Company Number: US-OTSUKA-DJ201307917

PATIENT

DRUGS (1)
  1. ABILIFY [Suspect]
     Active Substance: ARIPIPRAZOLE
     Route: 065

REACTIONS (11)
  - Somnolence [Unknown]
  - Amnesia [Unknown]
  - Dyspnoea [Unknown]
  - Choking [Unknown]
  - Excessive eye blinking [Unknown]
  - Crying [Unknown]
  - Dyskinesia [Unknown]
  - Weight decreased [Unknown]
  - Toe walking [Unknown]
  - Euphoric mood [Unknown]
  - Dysphagia [Unknown]
